FAERS Safety Report 8547353-0 (Version None)
Quarter: 2012Q3

REPORT INFORMATION
  Report Type: 
  Country: None (occurrence: None)
  Receive Date: 20120727
  Receipt Date: 20120604
  Transmission Date: 20120928
  Serious: No
  Sender: FDA-Public Use
  Company Number: US-ASTRAZENECA-2012SE19432

PATIENT
  Age: 89 Year
  Sex: Male
  Weight: 63.5 kg

DRUGS (2)
  1. SEROQUEL [Suspect]
     Indication: DEMENTIA
     Route: 048
  2. SEROQUEL [Suspect]
     Route: 048

REACTIONS (3)
  - OFF LABEL USE [None]
  - THERAPEUTIC RESPONSE DECREASED [None]
  - DEMENTIA [None]
